FAERS Safety Report 22103982 (Version 2)
Quarter: 2023Q1

REPORT INFORMATION
  Report Type: Other
  Country: PK (occurrence: None)
  Receive Date: 20230316
  Receipt Date: 20230322
  Transmission Date: 20230417
  Serious: Yes (Other)
  Sender: FDA-Public Use
  Company Number: PK-ROCHE-3308615

PATIENT
  Age: 59 Year
  Sex: Female

DRUGS (2)
  1. HERCEPTIN [Suspect]
     Active Substance: TRASTUZUMAB
     Indication: Breast cancer
     Dosage: TOTAL NUMBER OF CYCLES ADMINISTERED = 28
     Route: 058
     Dates: start: 20210607, end: 20230313
  2. PERJETA [Suspect]
     Active Substance: PERTUZUMAB
     Indication: Breast cancer
     Dosage: TOTAL NUMBER OF CYCLES ADMINISTERED = 28
     Route: 042
     Dates: start: 20210607, end: 20230313

REACTIONS (2)
  - Hepatic rupture [Not Recovered/Not Resolved]
  - Asthenia [Not Recovered/Not Resolved]

NARRATIVE: CASE EVENT DATE: 20230313
